FAERS Safety Report 15069367 (Version 6)
Quarter: 2019Q3

REPORT INFORMATION
  Report Type: Report from Study
  Country: US (occurrence: US)
  Receive Date: 20180626
  Receipt Date: 20190724
  Transmission Date: 20191004
  Serious: Yes (Death, Hospitalization, Other)
  Sender: FDA-Public Use
  Company Number: US-ACTELION-A-NJ2018-174210

PATIENT
  Age: 85 Year
  Sex: Female

DRUGS (2)
  1. SILDENAFIL. [Concomitant]
     Active Substance: SILDENAFIL
  2. TRACLEER [Suspect]
     Active Substance: BOSENTAN
     Indication: PULMONARY ARTERIAL HYPERTENSION
     Dosage: 125 MG, BID
     Route: 048
     Dates: start: 20190309, end: 20190601

REACTIONS (14)
  - Pain [Unknown]
  - Chest pain [Unknown]
  - Death [Fatal]
  - Back pain [Unknown]
  - Blood pressure increased [Unknown]
  - Syncope [Unknown]
  - Loss of consciousness [Unknown]
  - Neuropathy peripheral [Unknown]
  - Upper limb fracture [Not Recovered/Not Resolved]
  - Pain in extremity [Unknown]
  - Dizziness [Unknown]
  - Product dose omission [Unknown]
  - Dyspnoea [Unknown]
  - Fatigue [Unknown]

NARRATIVE: CASE EVENT DATE: 20190401
